FAERS Safety Report 20900547 (Version 2)
Quarter: 2022Q3

REPORT INFORMATION
  Report Type: Report from Study
  Country: JP (occurrence: JP)
  Receive Date: 20220601
  Receipt Date: 20220714
  Transmission Date: 20221027
  Serious: Yes (Death)
  Sender: FDA-Public Use
  Company Number: JP-OTSUKA-2022_030055

PATIENT
  Sex: Male

DRUGS (9)
  1. ARIPIPRAZOLE [Suspect]
     Active Substance: ARIPIPRAZOLE
     Indication: Bipolar I disorder
     Dosage: 400 MG/SHOT
     Route: 030
     Dates: start: 20211111, end: 20211111
  2. ARIPIPRAZOLE [Suspect]
     Active Substance: ARIPIPRAZOLE
     Dosage: 400 MG/SHOT
     Route: 030
     Dates: start: 20210527, end: 20210527
  3. ARIPIPRAZOLE [Suspect]
     Active Substance: ARIPIPRAZOLE
     Dosage: 400 MG/SHOT
     Route: 030
     Dates: start: 20210624, end: 20210624
  4. ARIPIPRAZOLE [Suspect]
     Active Substance: ARIPIPRAZOLE
     Dosage: 400 MG/SHOT
     Route: 030
     Dates: start: 20210722, end: 20210722
  5. ARIPIPRAZOLE [Suspect]
     Active Substance: ARIPIPRAZOLE
     Dosage: 400 MG/SHOT
     Route: 030
     Dates: start: 20210819, end: 20210819
  6. ARIPIPRAZOLE [Suspect]
     Active Substance: ARIPIPRAZOLE
     Dosage: 400 MG/SHOT
     Route: 030
     Dates: start: 20210916, end: 20210916
  7. ARIPIPRAZOLE [Suspect]
     Active Substance: ARIPIPRAZOLE
     Dosage: 400 MG/SHOT
     Route: 030
     Dates: start: 20211014, end: 20211014
  8. TRAZODONE HYDROCHLORIDE [Concomitant]
     Active Substance: TRAZODONE HYDROCHLORIDE
     Indication: Insomnia
     Dosage: 50 MG/DAY
     Route: 048
     Dates: end: 20220201
  9. HUMALOG [Concomitant]
     Active Substance: INSULIN LISPRO
     Indication: Diabetes mellitus
     Dosage: UNK
     Route: 065
     Dates: end: 20220201

REACTIONS (2)
  - Diabetic gangrene [Fatal]
  - General physical health deterioration [Fatal]
